FAERS Safety Report 4392905-5 (Version None)
Quarter: 2004Q3

REPORT INFORMATION
  Report Type: 
  Country: None (occurrence: None)
  Receive Date: 20040702
  Receipt Date: 20040625
  Transmission Date: 20050211
  Serious: Yes (Hospitalization)
  Sender: FDA-Public Use
  Company Number: PERI00204002163

PATIENT
  Age: 67 Year
  Sex: Male
  Weight: 85 kg

DRUGS (1)
  1. ACEON [Suspect]
     Indication: ESSENTIAL HYPERTENSION
     Dosage: 1 MG QD PO
     Route: 048
     Dates: start: 20010504, end: 20031017

REACTIONS (6)
  - DEHYDRATION [None]
  - HYPERKALAEMIA [None]
  - HYPONATRAEMIA [None]
  - NEPHROANGIOSCLEROSIS [None]
  - RENAL FAILURE ACUTE [None]
  - RENAL FAILURE CHRONIC [None]
